FAERS Safety Report 17983368 (Version 1)
Quarter: 2020Q3

REPORT INFORMATION
  Report Type: Spontaneous
  Country: IL (occurrence: IL)
  Receive Date: 20200706
  Receipt Date: 20200706
  Transmission Date: 20201103
  Serious: Yes (Hospitalization, Other)
  Sender: FDA-Public Use
  Company Number: IL-TEVA-2020-IL-1796139

PATIENT
  Age: 66 Year
  Sex: Male

DRUGS (3)
  1. CARBOPLATIN. [Suspect]
     Active Substance: CARBOPLATIN
     Dates: start: 202002
  2. KEYTRUDA [Suspect]
     Active Substance: PEMBROLIZUMAB
     Dates: start: 202002
  3. ALIMTA [Suspect]
     Active Substance: PEMETREXED DISODIUM
     Dates: start: 202002

REACTIONS (2)
  - Pneumonitis [Unknown]
  - Pneumothorax [Unknown]
